FAERS Safety Report 8500509-5 (Version None)
Quarter: 2012Q3

REPORT INFORMATION
  Report Type: 
  Country: None (occurrence: None)
  Receive Date: 20120705
  Receipt Date: 20120705
  Transmission Date: 20120928
  Serious: Yes (Hospitalization)
  Sender: FDA-Public Use
  Company Number: None

PATIENT
  Sex: Female
  Weight: 61 kg

DRUGS (3)
  1. PACLITAXEL [Suspect]
     Dosage: 265 MG
     Dates: end: 20120601
  2. CARBOPLATIN [Suspect]
     Dosage: 630 MG
     Dates: end: 20120601
  3. BEVACIZUMAB (RHUMAB VEGF) [Suspect]
     Dosage: 1035 MG
     Dates: end: 20120601

REACTIONS (3)
  - ASTHENIA [None]
  - ELECTROLYTE IMBALANCE [None]
  - FALL [None]
